FAERS Safety Report 8193279-4 (Version None)
Quarter: 2012Q1

REPORT INFORMATION
  Report Type: 
  Country: None (occurrence: None)
  Receive Date: 20120308
  Receipt Date: 20120305
  Transmission Date: 20120608
  Serious: Yes (Death)
  Sender: FDA-Public Use
  Company Number: US-CELGENEUS-163-21880-10081784

PATIENT
  Sex: Female

DRUGS (7)
  1. PREDNISONE TAB [Concomitant]
     Dosage: 1 MILLIGRAM
     Route: 048
  2. OMEPRAZOLE [Concomitant]
     Dosage: 10 MILLIGRAM
     Route: 048
  3. ARICEPT [Concomitant]
     Dosage: 5 MILLIGRAM
     Route: 048
  4. COUMADIN [Concomitant]
     Dosage: 1 MILLIGRAM
     Route: 048
  5. LEXAPRO [Concomitant]
     Dosage: 5 MILLIGRAM
     Route: 048
  6. REVLIMID [Suspect]
     Indication: MULTIPLE MYELOMA
     Dosage: 15 MILLIGRAM
     Route: 048
     Dates: start: 20100601
  7. ALBUTEROL [Concomitant]
     Dosage: 4 MILLIGRAM
     Route: 048

REACTIONS (5)
  - BACK PAIN [None]
  - CONTUSION [None]
  - MULTIPLE MYELOMA [None]
  - MUSCULOSKELETAL CHEST PAIN [None]
  - DYSPNOEA [None]
